FAERS Safety Report 6213968-8 (Version None)
Quarter: 2009Q2

REPORT INFORMATION
  Report Type: 
  Country: None (occurrence: None)
  Receive Date: 20090604
  Receipt Date: 20090601
  Transmission Date: 20091009
  Serious: Yes (Hospitalization)
  Sender: FDA-Public Use
  Company Number: FR-JNJFOC-20090600490

PATIENT
  Age: 54 Year
  Sex: Female

DRUGS (5)
  1. TAVANIC [Suspect]
     Indication: BRONCHOPNEUMONIA
     Route: 042
  2. ROCEPHIN [Suspect]
     Indication: BRONCHOPNEUMONIA
     Route: 042
  3. NORSET [Suspect]
     Indication: DEPRESSION
     Route: 048
  4. LEXOMIL [Suspect]
     Route: 048
  5. LEXOMIL [Suspect]
     Indication: DRUG USE FOR UNKNOWN INDICATION
     Route: 048

REACTIONS (3)
  - ASTHENIA [None]
  - CONFUSIONAL STATE [None]
  - GROSS MOTOR DELAY [None]
